FAERS Safety Report 13779343 (Version 2)
Quarter: 2017Q3

REPORT INFORMATION
  Report Type: Spontaneous
  Country: US (occurrence: US)
  Receive Date: 20170721
  Receipt Date: 20170804
  Transmission Date: 20171127
  Serious: Yes (Other)
  Sender: FDA-Public Use
  Company Number: US-GILEAD-2017-0283878

PATIENT
  Sex: Male

DRUGS (1)
  1. ATRIPLA [Suspect]
     Active Substance: EFAVIRENZ\EMTRICITABINE\TENOFOVIR DISOPROXIL FUMARATE
     Indication: PRODUCT USED FOR UNKNOWN INDICATION
     Dosage: UNK
     Route: 065
     Dates: start: 2007, end: 201601

REACTIONS (10)
  - Heart rate increased [Unknown]
  - Memory impairment [Recovering/Resolving]
  - Anxiety [Unknown]
  - Blood pressure increased [Unknown]
  - Metabolic disorder [Unknown]
  - Impaired work ability [Unknown]
  - Mood altered [Unknown]
  - Cardiac disorder [Unknown]
  - Mental disorder [Unknown]
  - Disturbance in attention [Recovering/Resolving]

NARRATIVE: CASE EVENT DATE: 2015
